FAERS Safety Report 24773517 (Version 3)
Quarter: 2025Q1

REPORT INFORMATION
  Report Type: Spontaneous
  Country: US (occurrence: US)
  Receive Date: 20241225
  Receipt Date: 20250102
  Transmission Date: 20250409
  Serious: No
  Sender: NOVARTIS
  Company Number: US-ORG100013279-032358

PATIENT
  Sex: Male

DRUGS (1)
  1. LAMISIL [Suspect]
     Active Substance: TERBINAFINE HYDROCHLORIDE
     Indication: Fungal infection
     Route: 065
     Dates: start: 20241202

REACTIONS (1)
  - Drug ineffective [Unknown]
